FAERS Safety Report 18851033 (Version 1)
Quarter: 2021Q1

REPORT INFORMATION
  Report Type: Spontaneous
  Country: US (occurrence: US)
  Receive Date: 20210205
  Receipt Date: 20210205
  Transmission Date: 20210420
  Serious: No
  Sender: FDA-Public Use
  Company Number: US-BIOGEN-2021BI00973477

PATIENT
  Sex: Female

DRUGS (1)
  1. TYSABRI [Suspect]
     Active Substance: NATALIZUMAB
     Indication: PRODUCT USED FOR UNKNOWN INDICATION
     Route: 065

REACTIONS (10)
  - Constipation [Unknown]
  - Vision blurred [Unknown]
  - Crying [Unknown]
  - Back pain [Unknown]
  - Fatigue [Unknown]
  - Cognitive disorder [Unknown]
  - Dyskinesia [Unknown]
  - Hypoaesthesia [Unknown]
  - Asthenia [Unknown]
  - Band sensation [Unknown]

NARRATIVE: CASE EVENT DATE: 2014
